FAERS Safety Report 6270382-7 (Version None)
Quarter: 2009Q3

REPORT INFORMATION
  Report Type: 
  Country: None (occurrence: None)
  Receive Date: 20090716
  Receipt Date: 20090710
  Transmission Date: 20100115
  Serious: No
  Sender: FDA-Public Use
  Company Number: US-B.I. PHARMACEUTICALS,INC./RIDGEFIELD-2009-BP-08270BP

PATIENT
  Age: 72 Year
  Sex: Female

DRUGS (4)
  1. SPIRIVA [Suspect]
     Dosage: 18 MCG
     Dates: start: 20070101
  2. SIMVASTATIN [Concomitant]
     Indication: BLOOD CHOLESTEROL
     Route: 048
     Dates: start: 20070101
  3. CLONAZEPAM [Concomitant]
     Indication: SLEEP DISORDER
     Route: 048
     Dates: start: 20070101
  4. TRAMADOL HCL [Concomitant]
     Indication: PAIN
     Route: 048
     Dates: start: 20070101

REACTIONS (4)
  - DRY EYE [None]
  - GLOSSODYNIA [None]
  - VAGINAL DISCHARGE [None]
  - VULVOVAGINAL PRURITUS [None]
